FAERS Safety Report 7627508-X (Version None)
Quarter: 2011Q3

REPORT INFORMATION
  Report Type: 
  Country: None (occurrence: None)
  Receive Date: 20110721
  Receipt Date: 20110714
  Transmission Date: 20111222
  Serious: Yes (Other)
  Sender: FDA-Public Use
  Company Number: AU-PFIZER INC-2011119207

PATIENT
  Sex: Female
  Weight: 59 kg

DRUGS (2)
  1. ZOLOFT [Suspect]
     Indication: DEPRESSION
     Dosage: 50-75MG, 1X/DAY (MORNING)
     Route: 048
     Dates: start: 20000101, end: 20090101
  2. ZOLOFT [Suspect]
     Indication: ANXIETY

REACTIONS (5)
  - DRUG INEFFECTIVE [None]
  - LIBIDO DECREASED [None]
  - DISSOCIATIVE DISORDER [None]
  - MENSTRUATION IRREGULAR [None]
  - OCCIPITAL NEURALGIA [None]
